FAERS Safety Report 6897629-8 (Version None)
Quarter: 2010Q3

REPORT INFORMATION
  Report Type: 
  Country: None (occurrence: None)
  Receive Date: 20100802
  Receipt Date: 20070626
  Transmission Date: 20110219
  Serious: Yes (Other)
  Sender: FDA-Public Use
  Company Number: US-PFIZER INC-2007053197

PATIENT
  Sex: Female
  Weight: 43.636 kg

DRUGS (1)
  1. LYRICA [Suspect]
     Indication: MUSCLE DISORDER
     Dates: start: 20070301

REACTIONS (3)
  - BLOOD CREATINE PHOSPHOKINASE INCREASED [None]
  - MYALGIA [None]
  - VISUAL IMPAIRMENT [None]
